FAERS Safety Report 7521608-0 (Version None)
Quarter: 2011Q2

REPORT INFORMATION
  Report Type: 
  Country: None (occurrence: None)
  Receive Date: 20110524
  Receipt Date: 20110510
  Transmission Date: 20111010
  Serious: Yes (Hospitalization)
  Sender: FDA-Public Use
  Company Number: CIP11000548

PATIENT
  Age: 63 Year
  Sex: Female
  Weight: 54.5 kg

DRUGS (14)
  1. FOSAMAX [Suspect]
     Dosage: 70 MG WEEKLY, ORAL
     Route: 048
     Dates: start: 20010701, end: 20020801
  2. CLIMARA [Concomitant]
  3. MIRALAX [Concomitant]
  4. RHINOCORT /00212602/(BECLOMETASONE DIPROPIONATE) [Concomitant]
  5. AMBIEN [Concomitant]
  6. IMITREX /01044801/ (SUMATRIPTAN) [Concomitant]
  7. ZITHROMAX [Concomitant]
  8. RESTASIS (CICLOSPORIN) [Concomitant]
  9. FOSAMAX [Suspect]
     Dosage: 10 MG, DAILY,
     Dates: start: 19990101, end: 20010701
  10. PROCHIEVE (PROGESTERONE) [Concomitant]
  11. SONATA /00061001/ (XEIAOPEOSOL) [Concomitant]
  12. ACTONEL [Suspect]
     Indication: OSTEOPOROSIS
     Dosage: 35 MG ONCE WEEKLY, ORAL
     Route: 048
     Dates: start: 20020813
  13. BONIVA [Suspect]
     Dosage: 150 MG ONCE MONTHLY, ORAL
     Route: 048
     Dates: start: 20050912
  14. MIRALAX [Concomitant]

REACTIONS (8)
  - FEMUR FRACTURE [None]
  - PAIN IN EXTREMITY [None]
  - GAIT DISTURBANCE [None]
  - BONE DISORDER [None]
  - BONE MARROW OEDEMA [None]
  - MUSCULAR WEAKNESS [None]
  - PATHOLOGICAL FRACTURE [None]
  - JOINT SWELLING [None]
